FAERS Safety Report 7387102-5 (Version None)
Quarter: 2011Q1

REPORT INFORMATION
  Report Type: 
  Country: None (occurrence: None)
  Receive Date: 20110331
  Receipt Date: 20110324
  Transmission Date: 20110831
  Serious: Yes (Death, Hospitalization)
  Sender: FDA-Public Use
  Company Number: A0772837A

PATIENT
  Age: 81 Year
  Sex: Female
  Weight: 86.4 kg

DRUGS (6)
  1. ZETIA [Concomitant]
  2. GLYBURIDE [Concomitant]
  3. NIFEREX [Concomitant]
  4. ATENOLOL [Concomitant]
  5. ZOCOR [Concomitant]
  6. AVANDIA [Suspect]
     Indication: DIABETES MELLITUS
     Dosage: 4MG PER DAY
     Route: 048
     Dates: start: 20030113, end: 20061230

REACTIONS (6)
  - LIVER INJURY [None]
  - CEREBROVASCULAR ACCIDENT [None]
  - PULMONARY ARTERIAL HYPERTENSION [None]
  - CARDIAC FAILURE [None]
  - CARDIO-RESPIRATORY ARREST [None]
  - RENAL FAILURE [None]
